FAERS Safety Report 5642887-0 (Version None)
Quarter: 2008Q1

REPORT INFORMATION
  Report Type: 
  Country: None (occurrence: None)
  Receive Date: 20080227
  Receipt Date: 20080227
  Transmission Date: 20080703
  Serious: Yes (Life-Threatening)
  Sender: FDA-Public Use
  Company Number: None

PATIENT
  Age: 63 Year
  Sex: Female
  Weight: 96.1626 kg

DRUGS (1)
  1. AMLODIPINE [Suspect]
     Indication: HYPERTENSION
     Dosage: 5MG  1 X DAY
     Dates: start: 20080216, end: 20080222

REACTIONS (5)
  - BLOOD PRESSURE FLUCTUATION [None]
  - CHEST DISCOMFORT [None]
  - DIZZINESS [None]
  - HEART RATE INCREASED [None]
  - ILL-DEFINED DISORDER [None]
